FAERS Safety Report 18684438 (Version 8)
Quarter: 2021Q3

REPORT INFORMATION
  Report Type: Report from Study
  Country: CA (occurrence: CA)
  Receive Date: 20201230
  Receipt Date: 20210804
  Transmission Date: 20211014
  Serious: Yes (Death, Hospitalization, Other)
  Sender: FDA-Public Use
  Company Number: NVSC2020CA341941

PATIENT
  Age: 71 Year
  Sex: Female

DRUGS (4)
  1. SANDOSTATIN LAR DEPOT [Suspect]
     Active Substance: OCTREOTIDE ACETATE
     Indication: NEUROENDOCRINE TUMOUR
  2. LANREOTIDE [Concomitant]
     Active Substance: LANREOTIDE
     Indication: PRODUCT USED FOR UNKNOWN INDICATION
     Dosage: UNK
     Route: 065
     Dates: end: 2020
  3. SANDOSTATIN LAR DEPOT [Suspect]
     Active Substance: OCTREOTIDE ACETATE
     Indication: CARCINOID TUMOUR
     Dosage: 60 MG, Q4W(4 WEEKS) (FORMULATION: VIAL)
     Route: 030
     Dates: start: 20201123
  4. SANDOSTATIN LAR DEPOT [Suspect]
     Active Substance: OCTREOTIDE ACETATE

REACTIONS (12)
  - Malignant neoplasm progression [Unknown]
  - Dry skin [Unknown]
  - Malaise [Unknown]
  - Incorrect dose administered [Unknown]
  - Death [Fatal]
  - Dehydration [Unknown]
  - Carcinoid tumour [Unknown]
  - Pruritus [Unknown]
  - Skin atrophy [Unknown]
  - Neuroendocrine tumour [Unknown]
  - Injection site pain [Unknown]
  - Weight decreased [Unknown]

NARRATIVE: CASE EVENT DATE: 202012
